FAERS Safety Report 19068912 (Version 1)
Quarter: 2021Q1

REPORT INFORMATION
  Report Type: Spontaneous
  Country: US (occurrence: US)
  Receive Date: 20210329
  Receipt Date: 20210329
  Transmission Date: 20210420
  Serious: No
  Sender: FDA-Public Use
  Company Number: US-PFIZER INC-2019427131

PATIENT
  Age: 8 Year
  Sex: Male

DRUGS (3)
  1. GENOTROPIN [Suspect]
     Active Substance: SOMATROPIN
     Dosage: 1.0 MG, DAILY
     Dates: start: 20181210
  2. GENOTROPIN [Suspect]
     Active Substance: SOMATROPIN
     Dosage: 0.9 MG, DAILY
     Dates: start: 20181210
  3. GENOTROPIN [Suspect]
     Active Substance: SOMATROPIN
     Dosage: 1.1 MG, DAILY
     Dates: start: 20181210

REACTIONS (3)
  - Product prescribing error [Unknown]
  - Device use issue [Unknown]
  - Device breakage [Unknown]

NARRATIVE: CASE EVENT DATE: 20181210
